FAERS Safety Report 19893428 (Version 2)
Quarter: 2021Q3

REPORT INFORMATION
  Report Type: Spontaneous
  Country: US (occurrence: US)
  Receive Date: 20210928
  Receipt Date: 20210930
  Transmission Date: 20211014
  Serious: No
  Sender: FDA-Public Use
  Company Number: US-SA-2021SA317754

PATIENT
  Sex: Female

DRUGS (1)
  1. NASACORT AQ [Suspect]
     Active Substance: TRIAMCINOLONE ACETONIDE
     Indication: NASAL POLYPS
     Dosage: UNK (DRUG STRUCTURE DOSAGE : UTR DRUG INTERVAL DOSAGE : UTR)
     Route: 045

REACTIONS (3)
  - Feeling abnormal [Unknown]
  - Headache [Unknown]
  - Therapeutic response decreased [Unknown]
